FAERS Safety Report 13277720 (Version 2)
Quarter: 2017Q1

REPORT INFORMATION
  Report Type: Spontaneous
  Country: DE (occurrence: DE)
  Receive Date: 20170228
  Receipt Date: 20170324
  Transmission Date: 20170428
  Serious: Yes (Hospitalization)
  Sender: FDA-Public Use
  Company Number: DE-SA-2017SA030058

PATIENT
  Age: 65 Year
  Sex: Male

DRUGS (1)
  1. ZALTRAP [Suspect]
     Active Substance: ZIV-AFLIBERCEPT
     Indication: COLORECTAL CANCER
     Route: 042
     Dates: start: 20160926, end: 20160926

REACTIONS (2)
  - Cardiac failure [Recovering/Resolving]
  - Left ventricular dysfunction [Unknown]

NARRATIVE: CASE EVENT DATE: 20161004
